FAERS Safety Report 18553487 (Version 3)
Quarter: 2021Q1

REPORT INFORMATION
  Report Type: Spontaneous
  Country: GB (occurrence: GB)
  Receive Date: 20201127
  Receipt Date: 20210306
  Transmission Date: 20210419
  Serious: Yes (Other)
  Sender: FDA-Public Use
  Company Number: GB-EMCURE PHARMACEUTICALS LTD-2020-EPL-001966

PATIENT
  Age: 90 Year
  Sex: Female
  Weight: 63.5 kg

DRUGS (11)
  1. ZOLEDRONIC ACID [Suspect]
     Active Substance: ZOLEDRONIC ACID
     Dosage: 5 MILLIGRAM
     Route: 042
     Dates: start: 20190305, end: 20190305
  2. FERROUS FUMARATE [Concomitant]
     Active Substance: FERROUS FUMARATE
  3. OMEPRAZOLE. [Concomitant]
     Active Substance: OMEPRAZOLE
  4. SERTRALINE [Concomitant]
     Active Substance: SERTRALINE HYDROCHLORIDE
  5. DIAZEPAM. [Concomitant]
     Active Substance: DIAZEPAM
  6. BISOPROLOL FUMARATE. [Concomitant]
     Active Substance: BISOPROLOL FUMARATE
  7. FOLIC ACID. [Concomitant]
     Active Substance: FOLIC ACID
  8. ZOLEDRONIC ACID [Suspect]
     Active Substance: ZOLEDRONIC ACID
     Indication: OSTEOPOROSIS
     Dosage: 5 MILLIGRAM
     Route: 042
     Dates: start: 20170609, end: 20170609
  9. VITAMIN D [Concomitant]
     Active Substance: VITAMIN D NOS
  10. CLOBETASONE BUTYRATE [Concomitant]
     Active Substance: CLOBETASONE BUTYRATE
  11. ACETYLSALICYLIC ACID [Concomitant]
     Active Substance: ASPIRIN

REACTIONS (2)
  - Otitis externa [Not Recovered/Not Resolved]
  - Off label use [Unknown]

NARRATIVE: CASE EVENT DATE: 202008
